FAERS Safety Report 10172140 (Version 2)
Quarter: 2014Q2

REPORT INFORMATION
  Report Type: Spontaneous
  Country: JP (occurrence: JP)
  Receive Date: 20140515
  Receipt Date: 20140522
  Transmission Date: 20141212
  Serious: Yes (Death)
  Sender: FDA-Public Use
  Company Number: PHHY2014JP057698

PATIENT
  Age: 74 Year
  Sex: Female

DRUGS (4)
  1. NEORAL [Suspect]
     Indication: INTERSTITIAL LUNG DISEASE
     Dosage: 70 MG, BID
     Route: 048
  2. NEORAL [Suspect]
     Indication: OFF LABEL USE
  3. SANDIMMUN [Suspect]
     Dosage: 70 MG, UNK
     Route: 042
  4. SANDIMMUN [Suspect]
     Dosage: 50 MG, UNK
     Route: 042

REACTIONS (3)
  - Interstitial lung disease [Fatal]
  - Infection [Fatal]
  - Immunosuppressant drug level increased [Unknown]
